FAERS Safety Report 23456964 (Version 3)
Quarter: 2024Q1

REPORT INFORMATION
  Report Type: Spontaneous
  Country: US (occurrence: US)
  Receive Date: 20240130
  Receipt Date: 20240311
  Transmission Date: 20240410
  Serious: No
  Sender: FDA-Public Use
  Company Number: US-PFIZER INC-202400026381

PATIENT
  Age: 88 Year
  Sex: Female

DRUGS (4)
  1. RAMIPRIL [Suspect]
     Active Substance: RAMIPRIL
     Indication: Blood pressure abnormal
     Dosage: 2.5 MG
     Dates: start: 2023
  2. RAMIPRIL [Suspect]
     Active Substance: RAMIPRIL
     Indication: Blood pressure increased
     Dosage: UP UNTIL THIS WEEK, SHE WAS ON RAMIPRIL
     Dates: start: 202401
  3. RAMIPRIL [Suspect]
     Active Substance: RAMIPRIL
     Dosage: UNK
     Route: 048
     Dates: start: 2022
  4. ATORVASTATIN [Suspect]
     Active Substance: ATORVASTATIN
     Dosage: 10 MG (SHE MIGHT HAVE TAKEN THE LIPITOR ONCE OR TWICE)

REACTIONS (1)
  - Hypotension [Unknown]
